FAERS Safety Report 18895472 (Version 2)
Quarter: 2025Q3

REPORT INFORMATION
  Report Type: Spontaneous
  Country: EU (occurrence: EU)
  Receive Date: 20210216
  Receipt Date: 20250816
  Transmission Date: 20251021
  Serious: Yes (Hospitalization, Other)
  Sender: CELLTRION
  Company Number: EU-CELLTRION INC.-2021FR001603

PATIENT

DRUGS (10)
  1. RITUXIMAB [Suspect]
     Active Substance: RITUXIMAB
     Indication: Chronic lymphocytic leukaemia
     Route: 065
  2. RITUXIMAB [Suspect]
     Active Substance: RITUXIMAB
     Route: 065
     Dates: start: 201404
  3. TROLNITRATE [Suspect]
     Active Substance: TROLNITRATE
     Indication: Chronic lymphocytic leukaemia
     Route: 042
  4. TROLNITRATE [Suspect]
     Active Substance: TROLNITRATE
     Indication: Chronic lymphocytic leukaemia
     Route: 065
  5. TROLNITRATE [Suspect]
     Active Substance: TROLNITRATE
     Route: 065
  6. TROLNITRATE [Suspect]
     Active Substance: TROLNITRATE
     Route: 065
  7. TROLNITRATE [Suspect]
     Active Substance: TROLNITRATE
     Route: 065
  8. PREDNISONE [Suspect]
     Active Substance: PREDNISONE
     Indication: Chronic lymphocytic leukaemia
     Route: 048
  9. CYCLOPHOSPHAMIDE [Suspect]
     Active Substance: CYCLOPHOSPHAMIDE
     Indication: Chronic lymphocytic leukaemia
     Route: 065
     Dates: start: 201404
  10. FLUDARABINE [Suspect]
     Active Substance: FLUDARABINE PHOSPHATE
     Indication: Chronic lymphocytic leukaemia
     Route: 065
     Dates: start: 201404

REACTIONS (3)
  - Neurological symptom [Recovered/Resolved with Sequelae]
  - Neutropenia [Recovered/Resolved]
  - Cytopenia [Unknown]
